FAERS Safety Report 5194743-2 (Version None)
Quarter: 2006Q4

REPORT INFORMATION
  Report Type: 
  Country: None (occurrence: None)
  Receive Date: 20061229
  Receipt Date: 20061218
  Transmission Date: 20070319
  Serious: Yes (Hospitalization)
  Sender: FDA-Public Use
  Company Number: US-AMGEN-US204129

PATIENT
  Sex: Female

DRUGS (1)
  1. ENBREL [Suspect]
     Indication: JUVENILE ARTHRITIS
     Route: 058
     Dates: start: 19990501

REACTIONS (7)
  - HIP ARTHROPLASTY [None]
  - JOINT SURGERY [None]
  - JOINT SWELLING [None]
  - KNEE ARTHROPLASTY [None]
  - MEDICAL DEVICE REMOVAL [None]
  - MENISCUS LESION [None]
  - SINUSITIS [None]
